FAERS Safety Report 9841146 (Version 1)
Quarter: 2013Q4

REPORT INFORMATION
  Report Type: Spontaneous
  Country: US (occurrence: None)
  Receive Date: 20131219
  Receipt Date: 20131219
  Transmission Date: 20140711
  Serious: Yes (Hospitalization)
  Sender: FDA-Public Use
  Company Number: 163-20785-12040995

PATIENT
  Age: 70 Year
  Sex: Female
  Weight: 63.96 kg

DRUGS (3)
  1. THALOMID [Suspect]
     Indication: PLASMA CELL MYELOMA
     Route: 048
     Dates: start: 201202, end: 201202
  2. MIRALAX (MACROGOL) (UNKNOWN) [Concomitant]
  3. TYLENOL (PARACETAMOL) (UNKNOWN) [Concomitant]

REACTIONS (1)
  - Dyspnoea [None]
